FAERS Safety Report 13684987 (Version 1)
Quarter: 2017Q2

REPORT INFORMATION
  Report Type: Spontaneous
  Country: JP (occurrence: JP)
  Receive Date: 20170623
  Receipt Date: 20170623
  Transmission Date: 20170830
  Serious: Yes (Hospitalization, Other)
  Sender: FDA-Public Use
  Company Number: JP-ASTRAZENECA-2017SE57587

PATIENT
  Age: 29300 Day
  Sex: Male
  Weight: 48 kg

DRUGS (3)
  1. TAGRISSO [Suspect]
     Active Substance: OSIMERTINIB
     Indication: NON-SMALL CELL LUNG CANCER
     Route: 048
     Dates: start: 20170426, end: 20170524
  2. TAGRISSO [Suspect]
     Active Substance: OSIMERTINIB
     Indication: NON-SMALL CELL LUNG CANCER
     Route: 048
     Dates: start: 20170602
  3. OPDIVO [Suspect]
     Active Substance: NIVOLUMAB
     Dosage: DOSE UNKNOWN
     Route: 041
     Dates: start: 20170215, end: 20170329

REACTIONS (6)
  - Metastases to lung [Unknown]
  - Renal cyst [Unknown]
  - Drug dose omission [Unknown]
  - Metastases to pleura [Unknown]
  - Non-cardiogenic pulmonary oedema [Unknown]
  - Interstitial lung disease [Recovered/Resolved]

NARRATIVE: CASE EVENT DATE: 20170524
